FAERS Safety Report 5265090-5 (Version None)
Quarter: 2007Q1

REPORT INFORMATION
  Report Type: 
  Country: None (occurrence: None)
  Receive Date: 20070314
  Receipt Date: 20070305
  Transmission Date: 20070707
  Serious: Yes (Hospitalization)
  Sender: FDA-Public Use
  Company Number: HQWYE212309FEB07

PATIENT
  Sex: Male

DRUGS (4)
  1. ENBREL [Suspect]
     Indication: RHEUMATOID ARTHRITIS
     Route: 058
     Dates: start: 20060725, end: 20060803
  2. DIART [Concomitant]
     Dosage: UNKNOWN
     Route: 048
  3. VOLTAREN-XR [Concomitant]
     Dosage: UNKNOWN
     Route: 048
  4. NEOISCOTIN [Concomitant]
     Dosage: UNKNOWN
     Route: 048

REACTIONS (1)
  - HISTIOCYTOSIS HAEMATOPHAGIC [None]
